FAERS Safety Report 19047236 (Version 3)
Quarter: 2022Q1

REPORT INFORMATION
  Report Type: Report from Study
  Country: GB (occurrence: GB)
  Receive Date: 20210323
  Receipt Date: 20220223
  Transmission Date: 20220423
  Serious: Yes (Other)
  Sender: FDA-Public Use
  Company Number: NVSC2021GB063556

PATIENT
  Age: 37 Year
  Sex: Male

DRUGS (2)
  1. OMNITROPE [Suspect]
     Active Substance: SOMATROPIN
     Indication: Growth hormone deficiency
     Dosage: 0.1 MG, QD
     Route: 058
  2. OMNITROPE [Suspect]
     Active Substance: SOMATROPIN
     Dosage: 0.05 MG/0.1 MG QOD
     Route: 058

REACTIONS (7)
  - Coma [Unknown]
  - Epilepsy [Unknown]
  - Fatigue [Recovered/Resolved]
  - Product dose omission issue [Unknown]
  - Malaise [Unknown]
  - Product packaging issue [Unknown]
  - Product availability issue [Unknown]
